FAERS Safety Report 14220335 (Version 2)
Quarter: 2018Q1

REPORT INFORMATION
  Report Type: Spontaneous
  Country: US (occurrence: US)
  Receive Date: 20171123
  Receipt Date: 20180123
  Transmission Date: 20180508
  Serious: No
  Sender: FDA-Public Use
  Company Number: US-JNJFOC-20171016985

PATIENT
  Age: 56 Year
  Sex: Male
  Weight: 79.38 kg

DRUGS (8)
  1. FENTANYL. [Suspect]
     Active Substance: FENTANYL
     Indication: ILL-DEFINED DISORDER
     Route: 062
     Dates: start: 201709
  2. FENTANYL. [Suspect]
     Active Substance: FENTANYL
     Indication: ILL-DEFINED DISORDER
     Route: 062
     Dates: start: 2012, end: 201709
  3. GABAPENTIN. [Concomitant]
     Active Substance: GABAPENTIN
     Indication: NEURALGIA
     Route: 048
     Dates: start: 2011
  4. FENTANYL. [Suspect]
     Active Substance: FENTANYL
     Indication: ILL-DEFINED DISORDER
     Route: 062
     Dates: end: 2012
  5. TRAZODONE [Concomitant]
     Active Substance: TRAZODONE HYDROCHLORIDE
     Indication: SLEEP DISORDER
     Route: 048
     Dates: start: 2011
  6. SIMVASTATIN. [Concomitant]
     Active Substance: SIMVASTATIN
     Indication: BLOOD CHOLESTEROL ABNORMAL
     Route: 048
     Dates: start: 2011
  7. PAXIL [Concomitant]
     Active Substance: PAROXETINE HYDROCHLORIDE
     Indication: DEPRESSION
     Route: 048
  8. CLONAZEPAM. [Concomitant]
     Active Substance: CLONAZEPAM
     Indication: NEUROPATHY PERIPHERAL
     Route: 048

REACTIONS (7)
  - Product packaging issue [Unknown]
  - Euphoric mood [Recovered/Resolved]
  - Eating disorder [Recovered/Resolved]
  - Influenza [Recovered/Resolved]
  - Lethargy [Recovered/Resolved]
  - Abnormal loss of weight [Not Recovered/Not Resolved]
  - Product quality issue [Not Recovered/Not Resolved]

NARRATIVE: CASE EVENT DATE: 20170911
